FAERS Safety Report 11690118 (Version 1)
Quarter: 2015Q4

REPORT INFORMATION
  Report Type: Spontaneous
  Country: US (occurrence: US)
  Receive Date: 20151102
  Receipt Date: 20151102
  Transmission Date: 20160304
  Serious: No
  Sender: FDA-Public Use
  Company Number: US-WATSON-2015-10451

PATIENT
  Age: 54 Year
  Sex: Male

DRUGS (1)
  1. RAPAFLO [Suspect]
     Active Substance: SILODOSIN
     Indication: URINE FLOW DECREASED
     Dosage: 8 MG, DAILY
     Route: 048
     Dates: start: 20150510, end: 20150515

REACTIONS (5)
  - Rhinorrhoea [Recovering/Resolving]
  - Nasal congestion [Recovering/Resolving]
  - Abdominal pain upper [Recovering/Resolving]
  - Dizziness [Recovering/Resolving]
  - Headache [Recovering/Resolving]

NARRATIVE: CASE EVENT DATE: 20150510
